FAERS Safety Report 6140635-1 (Version None)
Quarter: 2009Q1

REPORT INFORMATION
  Report Type: 
  Country: None (occurrence: None)
  Receive Date: 20090331
  Receipt Date: 20090331
  Transmission Date: 20090719
  Serious: Yes (Life-Threatening)
  Sender: FDA-Public Use
  Company Number: None

PATIENT
  Age: 36 Year
  Sex: Female
  Weight: 72.1219 kg

DRUGS (1)
  1. LORTAB [Suspect]
     Indication: ENDODONTIC PROCEDURE
     Dosage: 1 4-6 HOURS
     Dates: start: 20090313, end: 20090315

REACTIONS (12)
  - CONSTIPATION [None]
  - CRYING [None]
  - DRUG DISPENSING ERROR [None]
  - DYSPNOEA [None]
  - HYPERTENSION [None]
  - IMPAIRED WORK ABILITY [None]
  - INCORRECT DOSE ADMINISTERED [None]
  - INSOMNIA [None]
  - MEDICATION ERROR [None]
  - PAIN [None]
  - VOMITING [None]
  - WRONG DRUG ADMINISTERED [None]
